FAERS Safety Report 14589701 (Version 3)
Quarter: 2018Q2

REPORT INFORMATION
  Report Type: Report from Study
  Country: US (occurrence: US)
  Receive Date: 20180302
  Receipt Date: 20180507
  Transmission Date: 20180711
  Serious: Yes (Other)
  Sender: FDA-Public Use
  Company Number: US-GILEAD-2017-0311338

PATIENT
  Age: 47 Year
  Sex: Female

DRUGS (4)
  1. REMODULIN [Suspect]
     Active Substance: TREPROSTINIL
     Indication: PRODUCT USED FOR UNKNOWN INDICATION
     Dosage: UNK
     Route: 042
  2. AMBRISENTAN [Suspect]
     Active Substance: AMBRISENTAN
     Indication: PRODUCT USED FOR UNKNOWN INDICATION
     Dosage: 10 MG, QD
     Route: 065
     Dates: start: 20170504
  3. ADEMPAS [Concomitant]
     Active Substance: RIOCIGUAT
  4. UPTRAVI [Concomitant]
     Active Substance: SELEXIPAG

REACTIONS (8)
  - Loss of consciousness [Unknown]
  - Incontinence [Unknown]
  - Abdominal pain upper [Not Recovered/Not Resolved]
  - Hypotension [Recovered/Resolved]
  - Peripheral swelling [Not Recovered/Not Resolved]
  - Pain in jaw [Not Recovered/Not Resolved]
  - Pain in extremity [Not Recovered/Not Resolved]
  - Diarrhoea [Not Recovered/Not Resolved]
